FAERS Safety Report 15365968 (Version 3)
Quarter: 2019Q1

REPORT INFORMATION
  Report Type: Other
  Country: BE (occurrence: BE)
  Receive Date: 20180910
  Receipt Date: 20190114
  Transmission Date: 20190417
  Serious: Yes (Hospitalization, Other)
  Sender: FDA-Public Use
  Company Number: BE-ASPEN-GLO2018BE008960

PATIENT
  Age: 48 Year
  Sex: Male
  Weight: 92 kg

DRUGS (32)
  1. ADRIAMYCIN [Suspect]
     Active Substance: DOXORUBICIN HYDROCHLORIDE
     Dosage: UNK, REGIMEN 2
     Route: 065
     Dates: start: 20160519, end: 20160519
  2. FOLINIC ACID [Suspect]
     Active Substance: LEUCOVORIN
     Indication: ACUTE LYMPHOCYTIC LEUKAEMIA
     Dosage: UNK, REGIMEN 3
     Route: 065
     Dates: start: 20160609, end: 20160609
  3. FOLINIC ACID [Suspect]
     Active Substance: LEUCOVORIN
     Dosage: UNK, REGIMEN 1
     Route: 065
     Dates: start: 20160419, end: 20160419
  4. DEXAMETHASONE. [Suspect]
     Active Substance: DEXAMETHASONE
     Indication: ACUTE LYMPHOCYTIC LEUKAEMIA
     Dosage: UNK, REGIMEN 1
     Route: 065
     Dates: start: 20160419, end: 20160419
  5. CYTARABINE. [Suspect]
     Active Substance: CYTARABINE
     Dosage: UNK, REGIMEN 2
     Route: 065
     Dates: start: 20160519, end: 20160519
  6. ADRIAMYCIN [Suspect]
     Active Substance: DOXORUBICIN HYDROCHLORIDE
     Indication: ACUTE LYMPHOCYTIC LEUKAEMIA
     Dosage: UNK, REGIMEN 1
     Route: 065
     Dates: start: 20160419, end: 20160419
  7. METHYLPREDNISOLONE. [Suspect]
     Active Substance: METHYLPREDNISOLONE
     Dosage: UNK, REGIMEN 1
     Route: 065
     Dates: start: 20160419, end: 20160419
  8. METHYLPREDNISOLONE. [Suspect]
     Active Substance: METHYLPREDNISOLONE
     Dosage: UNK, REGIMEN 2
     Route: 065
     Dates: start: 20160519, end: 20160519
  9. CYCLOPHOSPHAMIDE. [Suspect]
     Active Substance: CYCLOPHOSPHAMIDE
     Indication: ACUTE LYMPHOCYTIC LEUKAEMIA
     Dosage: UNK, REGIMEN 2
     Route: 065
     Dates: start: 20160519, end: 20160519
  10. ACICLOVIR [Concomitant]
     Active Substance: ACYCLOVIR
     Indication: PRODUCT USED FOR UNKNOWN INDICATION
     Dosage: UNK
     Route: 065
  11. RANITIDINE. [Concomitant]
     Active Substance: RANITIDINE
     Indication: PRODUCT USED FOR UNKNOWN INDICATION
     Dosage: UNK
     Route: 065
     Dates: start: 20160412, end: 20161107
  12. DEXAMETHASONE. [Suspect]
     Active Substance: DEXAMETHASONE
     Dosage: UNK, REGIMEN 3
     Route: 065
     Dates: start: 20160609, end: 20160609
  13. METHOTREXATE. [Suspect]
     Active Substance: METHOTREXATE
     Indication: ACUTE LYMPHOCYTIC LEUKAEMIA
     Dosage: UNK, REGIMEN 2
     Route: 065
     Dates: start: 20160519, end: 20160519
  14. METHOTREXATE. [Suspect]
     Active Substance: METHOTREXATE
     Dosage: UNK, REGIMEN 1
     Route: 065
     Dates: start: 20160419, end: 20160419
  15. CYCLOPHOSPHAMIDE. [Suspect]
     Active Substance: CYCLOPHOSPHAMIDE
     Dosage: UNK, REGIMEN 3
     Route: 065
     Dates: start: 20160609, end: 20160609
  16. NEULASTA [Suspect]
     Active Substance: PEGFILGRASTIM
     Indication: ACUTE LYMPHOCYTIC LEUKAEMIA
     Dosage: 6 MG/0.6 ML, QD
     Route: 065
     Dates: start: 20160529, end: 20161107
  17. CALCIUM CARBONATE. [Concomitant]
     Active Substance: CALCIUM CARBONATE
     Indication: PRODUCT USED FOR UNKNOWN INDICATION
     Dosage: UNK
     Route: 065
  18. DEXAMETHASONE. [Suspect]
     Active Substance: DEXAMETHASONE
     Dosage: UNK, REGIMEN 2
     Route: 065
     Dates: start: 20160519, end: 20160519
  19. CYTARABINE. [Suspect]
     Active Substance: CYTARABINE
     Dosage: UNK, REGIMEN 3
     Route: 065
     Dates: start: 20160609, end: 20160609
  20. FOLINIC ACID [Suspect]
     Active Substance: LEUCOVORIN
     Dosage: UNK, REGIMEN 2
     Route: 065
     Dates: start: 20160519, end: 20160519
  21. ICLUSIG [Suspect]
     Active Substance: PONATINIB
     Indication: ACUTE LYMPHOCYTIC LEUKAEMIA
     Dosage: 45 MG, QD
     Route: 048
     Dates: start: 20160426
  22. VINCRISTINE [Suspect]
     Active Substance: VINCRISTINE
     Dosage: UNK, REGIMEN 3
     Route: 065
     Dates: start: 20160609, end: 20160609
  23. METHYLPREDNISOLONE. [Suspect]
     Active Substance: METHYLPREDNISOLONE
     Indication: ACUTE LYMPHOCYTIC LEUKAEMIA
     Dosage: UNK, REGIMEN 3
     Route: 065
     Dates: start: 20160609, end: 20160609
  24. CYCLOPHOSPHAMIDE. [Suspect]
     Active Substance: CYCLOPHOSPHAMIDE
     Dosage: UNK, REGIMEN 1
     Route: 065
     Dates: start: 20160419, end: 20160419
  25. ADRIAMYCIN [Suspect]
     Active Substance: DOXORUBICIN HYDROCHLORIDE
     Dosage: UNK, REGIMEN 3
     Route: 065
     Dates: start: 20160609, end: 20160609
  26. VINCRISTINE [Suspect]
     Active Substance: VINCRISTINE
     Indication: ACUTE LYMPHOCYTIC LEUKAEMIA
     Dosage: UNK, REGIMEN 2
     Route: 065
     Dates: start: 20160519, end: 20160519
  27. PENTACARINAT [Concomitant]
     Active Substance: PENTAMIDINE ISETHIONATE
     Indication: PRODUCT USED FOR UNKNOWN INDICATION
     Dosage: UNK
     Route: 065
  28. CIALIS [Concomitant]
     Active Substance: TADALAFIL
     Indication: PRODUCT USED FOR UNKNOWN INDICATION
     Dosage: UNK
     Route: 065
     Dates: start: 20160412, end: 20161107
  29. CYTARABINE. [Suspect]
     Active Substance: CYTARABINE
     Indication: ACUTE LYMPHOCYTIC LEUKAEMIA
     Dosage: UNK, REGIMEN 1
     Route: 065
     Dates: start: 20160419, end: 20160419
  30. METHOTREXATE. [Suspect]
     Active Substance: METHOTREXATE
     Dosage: UNK, REGIMEN 3
     Route: 065
     Dates: start: 20160609, end: 20160609
  31. VINCRISTINE [Suspect]
     Active Substance: VINCRISTINE
     Dosage: UNK, REGIMEN 1
     Route: 065
     Dates: start: 20160419, end: 20160419
  32. PRIMPERAN [Concomitant]
     Active Substance: METOCLOPRAMIDE HYDROCHLORIDE
     Indication: PRODUCT USED FOR UNKNOWN INDICATION
     Dosage: UNK
     Route: 065

REACTIONS (10)
  - Muscular weakness [Unknown]
  - Haematopoietic stem cell mobilisation [Unknown]
  - Tongue disorder [Unknown]
  - Chills [Unknown]
  - Inflammation [Recovered/Resolved]
  - Neutropenia [Recovered/Resolved]
  - Oesophagitis [Unknown]
  - Pyrexia [Recovered/Resolved]
  - Nasal congestion [Unknown]
  - Osteomyelitis [Unknown]

NARRATIVE: CASE EVENT DATE: 2016
